FAERS Safety Report 5681879-2 (Version None)
Quarter: 2008Q1

REPORT INFORMATION
  Report Type: 
  Country: None (occurrence: None)
  Receive Date: 20080327
  Receipt Date: 20070321
  Transmission Date: 20080703
  Serious: No
  Sender: FDA-Public Use
  Company Number: US-BAYER-US-2007-010195

PATIENT
  Age: 24 Year
  Sex: Female
  Weight: 66 kg

DRUGS (2)
  1. MIRENA [Suspect]
     Route: 015
     Dates: start: 20070312, end: 20070321
  2. LEXAPRO [Concomitant]
     Indication: DEPRESSION
     Dosage: UNIT DOSE: 10 MG
     Route: 048
     Dates: start: 20070101

REACTIONS (1)
  - INTRA-UTERINE CONTRACEPTIVE DEVICE EXPELLED [None]
